FAERS Safety Report 6096110-6 (Version None)
Quarter: 2009Q1

REPORT INFORMATION
  Report Type: 
  Country: None (occurrence: None)
  Receive Date: 20090227
  Receipt Date: 20080904
  Transmission Date: 20090719
  Serious: No
  Sender: FDA-Public Use
  Company Number: A0745960A

PATIENT
  Age: 48 Year
  Sex: Male

DRUGS (3)
  1. LAMICTAL [Suspect]
     Indication: BIPOLAR DISORDER
     Dosage: 50MG PER DAY
     Route: 048
     Dates: start: 20080805
  2. REMERON [Concomitant]
  3. XANAX [Concomitant]

REACTIONS (4)
  - ADVERSE EVENT [None]
  - AMNESIA [None]
  - LIBIDO DECREASED [None]
  - WEIGHT INCREASED [None]
